FAERS Safety Report 4646512-7 (Version None)
Quarter: 2005Q2

REPORT INFORMATION
  Report Type: 
  Country: None (occurrence: None)
  Receive Date: 20050427
  Receipt Date: 20040708
  Transmission Date: 20051028
  Serious: No
  Sender: FDA-Public Use
  Company Number: US-GLAXOSMITHKLINE-A0517438A

PATIENT
  Age: 54 Year
  Sex: Female

DRUGS (8)
  1. FLOVENT [Suspect]
     Indication: ASTHMA
     Dosage: 2PUFF TWICE PER DAY
     Route: 055
  2. SEREVENT [Suspect]
     Indication: ASTHMA
     Dosage: 2PUFF TWICE PER DAY
     Route: 055
  3. SINGULAIR [Concomitant]
  4. CLARITIN [Concomitant]
  5. FLONASE [Concomitant]
  6. VICODIN [Concomitant]
     Route: 065
  7. FOSAMAX [Concomitant]
  8. CLONIDINE [Concomitant]

REACTIONS (1)
  - CHRONIC SINUSITIS [None]
